FAERS Safety Report 4823499-5 (Version None)
Quarter: 2005Q4

REPORT INFORMATION
  Report Type: 
  Country: None (occurrence: None)
  Receive Date: 20051107
  Receipt Date: 20051025
  Transmission Date: 20060501
  Serious: Yes (Hospitalization, Other)
  Sender: FDA-Public Use
  Company Number: 21765

PATIENT
  Age: 73 Year
  Sex: Female
  Weight: 54.4316 kg

DRUGS (1)
  1. LEUCOVORIN CALCIUM [Suspect]
     Indication: BILIARY NEOPLASM
     Dosage: 25MG/M2, QDX5, IV BOLUS
     Route: 040
     Dates: start: 20050712

REACTIONS (2)
  - ABDOMINAL PAIN [None]
  - FEBRILE NEUTROPENIA [None]
